FAERS Safety Report 8008858-4 (Version None)
Quarter: 2011Q4

REPORT INFORMATION
  Report Type: 
  Country: None (occurrence: None)
  Receive Date: 20111227
  Receipt Date: 20111222
  Transmission Date: 20120403
  Serious: Yes (Life-Threatening, Hospitalization, Other)
  Sender: FDA-Public Use
  Company Number: PHHY2011GB111714

PATIENT
  Age: 54 Year
  Sex: Male

DRUGS (7)
  1. ACETYLSALICYLIC ACID SRT [Concomitant]
     Dosage: 75 MG, QD
     Route: 048
  2. FUROSEMIDE [Concomitant]
     Indication: HYPERTENSION
     Dosage: UNK UKN, UNK
  3. ATORVASTATIN [Concomitant]
     Indication: HYPERCHOLESTEROLAEMIA
     Dosage: UNK UKN, UNK
  4. RAMIPRIL [Suspect]
     Indication: HYPERTENSION
     Dosage: UNK UKN, UNK
     Route: 048
  5. METFORMIN HCL [Suspect]
     Indication: DIABETES MELLITUS
     Dosage: UNK UKN, UNK
     Route: 048
  6. OTHER THERAPEUTIC PRODUCTS/AZD6140/PLACEBO [Suspect]
     Indication: CORONARY ARTERY DISEASE
     Dosage: UNK UKN, UNK
     Route: 048
     Dates: start: 20111117, end: 20111209
  7. BISOPROLOL [Concomitant]
     Indication: HYPERTENSION
     Dosage: UNK UKN, UNK

REACTIONS (7)
  - HYPOTHERMIA [None]
  - HYPOGLYCAEMIA [None]
  - MALAISE [None]
  - RENAL FAILURE ACUTE [None]
  - VOMITING [None]
  - CIRCULATORY COLLAPSE [None]
  - SEPSIS [None]
